FAERS Safety Report 5890347-4 (Version None)
Quarter: 2008Q3

REPORT INFORMATION
  Report Type: 
  Country: None (occurrence: None)
  Receive Date: 20080918
  Receipt Date: 20080902
  Transmission Date: 20090109
  Serious: Yes (Life-Threatening)
  Sender: FDA-Public Use
  Company Number: 2008S1014343

PATIENT
  Age: 55 Year
  Sex: Female
  Weight: 106.5953 kg

DRUGS (6)
  1. BYSTOLIC [Suspect]
     Indication: HYPERTENSION
     Dosage: 5 MG;DAILY;ORAL
     Route: 048
     Dates: start: 20080722, end: 20080722
  2. ACTOS [Concomitant]
  3. METOPROLOL SUCCINATE [Concomitant]
  4. ESTRADIOL [Concomitant]
  5. LEVOTHROID [Concomitant]
  6. MICARDIS HCT [Concomitant]

REACTIONS (6)
  - DYSPNOEA [None]
  - HYPERSENSITIVITY [None]
  - NAUSEA [None]
  - PAIN [None]
  - SWOLLEN TONGUE [None]
  - TACHYCARDIA [None]
